FAERS Safety Report 26037862 (Version 1)
Quarter: 2025Q4

REPORT INFORMATION
  Report Type: Spontaneous
  Country: US (occurrence: US)
  Receive Date: 20251112
  Receipt Date: 20251112
  Transmission Date: 20260118
  Serious: No
  Sender: BRACCO
  Company Number: US-BRACCO-2025US04784

PATIENT
  Sex: Female

DRUGS (7)
  1. LUMASON [Suspect]
     Active Substance: SULFUR HEXAFLUORIDE
     Indication: Echocardiogram
     Dosage: UNK UNK, SINGLE
     Route: 042
     Dates: start: 20250711, end: 20250711
  2. LUMASON [Suspect]
     Active Substance: SULFUR HEXAFLUORIDE
     Indication: Echocardiogram
     Dosage: UNK UNK, SINGLE
     Route: 042
     Dates: start: 20250711, end: 20250711
  3. LUMASON [Suspect]
     Active Substance: SULFUR HEXAFLUORIDE
     Indication: Echocardiogram
     Dosage: UNK UNK, SINGLE
     Route: 042
     Dates: start: 20250711, end: 20250711
  4. ALDACTONE [Concomitant]
     Active Substance: SPIRONOLACTONE
  5. EMPAGLIFLOZIN [Concomitant]
     Active Substance: EMPAGLIFLOZIN
  6. LOSARTAN [Concomitant]
     Active Substance: LOSARTAN
  7. METOPROLOL [Concomitant]
     Active Substance: METOPROLOL

REACTIONS (4)
  - Malaise [Recovered/Resolved]
  - Hyperhidrosis [Recovered/Resolved]
  - Dizziness [Recovered/Resolved]
  - Somnolence [Recovered/Resolved]

NARRATIVE: CASE EVENT DATE: 20250711
